FAERS Safety Report 17209538 (Version 1)
Quarter: 2019Q4

REPORT INFORMATION
  Report Type: Spontaneous
  Country: US (occurrence: US)
  Receive Date: 20191227
  Receipt Date: 20191227
  Transmission Date: 20200122
  Serious: No
  Sender: FDA-Public Use
  Company Number: US-TORRENT-00009422

PATIENT
  Sex: Female
  Weight: 108 kg

DRUGS (4)
  1. TRAZODONE [Suspect]
     Active Substance: TRAZODONE HYDROCHLORIDE
     Indication: INSOMNIA
     Dosage: 2 WEEKS AGO SHE STARTED TAKING 100 MG DOSE
     Route: 048
     Dates: start: 201910
  2. TRAZODONE HYDROCHLORIDE. [Concomitant]
     Active Substance: TRAZODONE HYDROCHLORIDE
     Indication: INSOMNIA
     Dosage: UNKNOWN
     Dates: start: 1994
  3. ASPIRIN. [Concomitant]
     Active Substance: ASPIRIN
     Indication: INSOMNIA
     Dosage: 2 WEEKS AGO
     Dates: end: 201910
  4. TRAZODONE [Suspect]
     Active Substance: TRAZODONE HYDROCHLORIDE
     Indication: INSOMNIA
     Dosage: ONE TABLET OF 50 MG AND HALF TABLET OF 50 MG SO TOTAL 75 MG OF DOSE SHE WAS TAKING
     Dates: start: 2019

REACTIONS (11)
  - Nightmare [Unknown]
  - Myalgia [Unknown]
  - Product substitution issue [Unknown]
  - Oropharyngeal pain [Unknown]
  - Ear pain [Unknown]
  - Weight increased [Unknown]
  - Drug ineffective [Unknown]
  - Pain [Unknown]
  - Hunger [Unknown]
  - Headache [Unknown]
  - Poor quality sleep [Unknown]

NARRATIVE: CASE EVENT DATE: 2019
